FAERS Safety Report 20137058 (Version 1)
Quarter: 2021Q4

REPORT INFORMATION
  Report Type: Spontaneous
  Country: US (occurrence: US)
  Receive Date: 20211201
  Receipt Date: 20211201
  Transmission Date: 20220303
  Serious: No
  Sender: FDA-Public Use
  Company Number: US-MYLANLABS-2021M1086011

PATIENT
  Age: 64 Year
  Sex: Female
  Weight: 54.43 kg

DRUGS (2)
  1. EPINEPHRINE [Suspect]
     Active Substance: EPINEPHRINE
     Indication: Product used for unknown indication
     Dosage: 0.15 MILLIGRAM
     Dates: start: 20211117
  2. SYNTHROID [Concomitant]
     Active Substance: LEVOTHYROXINE SODIUM
     Indication: Thyroid disorder
     Dosage: UNK

REACTIONS (3)
  - Tremor [Unknown]
  - Accidental exposure to product [Unknown]
  - Product quality issue [Unknown]

NARRATIVE: CASE EVENT DATE: 20211117
